FAERS Safety Report 8793877 (Version 1)
Quarter: 2012Q4

REPORT INFORMATION
  Report Type: 
  Country: ES (occurrence: ES)
  Receive Date: 20120917
  Receipt Date: 20120917
  Transmission Date: 20130627
  Serious: Yes (Other)
  Sender: FDA-Public Use
  Company Number: ES-ELI_LILLY_AND_COMPANY-ES201209001602

PATIENT
  Sex: Female

DRUGS (2)
  1. FORSTEO [Suspect]
     Dosage: UNK, unknown
     Route: 065
  2. FORSTEO [Suspect]
     Dosage: UNK, unknown
     Route: 065
     Dates: start: 201203

REACTIONS (3)
  - Bladder operation [Unknown]
  - Paraesthesia [Unknown]
  - Burning sensation [Unknown]
